FAERS Safety Report 4623682-8 (Version None)
Quarter: 2005Q2

REPORT INFORMATION
  Report Type: 
  Country: None (occurrence: None)
  Receive Date: 20050325
  Receipt Date: 20041221
  Transmission Date: 20051028
  Serious: No
  Sender: FDA-Public Use
  Company Number: USA041081579

PATIENT
  Age: 69 Year
  Sex: Female
  Weight: 44 kg

DRUGS (7)
  1. EVISTA [Suspect]
     Dates: start: 19970701
  2. FORTEO [Suspect]
     Indication: OSTEOPOROSIS
     Dosage: 20 UG/ 1 DAY
     Dates: start: 20040915
  3. TOBRAMYCIN [Concomitant]
  4. VERAPAMIL [Concomitant]
  5. ALPRAZOLAM [Concomitant]
  6. MULTIVITAMIN [Concomitant]
  7. CALCIUM WITH VITAMIN D [Concomitant]

REACTIONS (9)
  - ARTHRALGIA [None]
  - FATIGUE [None]
  - HERPES SIMPLEX [None]
  - INJECTION SITE ERYTHEMA [None]
  - INJECTION SITE IRRITATION [None]
  - JOINT SWELLING [None]
  - MUSCLE SPASMS [None]
  - PARANASAL SINUS HYPERSECRETION [None]
  - SINUSITIS [None]
